FAERS Safety Report 8722214 (Version 2)
Quarter: 2013Q4

REPORT INFORMATION
  Report Type: Spontaneous
  Country: GB (occurrence: GB)
  Receive Date: 20120814
  Receipt Date: 20131031
  Transmission Date: 20140711
  Serious: Yes (Hospitalization)
  Sender: FDA-Public Use
  Company Number: GB-009507513-1208GBR004284

PATIENT
  Age: 65 Year
  Sex: Female

DRUGS (13)
  1. ZOCOR [Suspect]
     Indication: HYPERCHOLESTEROLAEMIA
     Dosage: 40 MG, UNK
     Route: 048
     Dates: end: 20120712
  2. ASPIRIN [Concomitant]
     Dosage: 75 MG, QD
  3. BUTRANS [Concomitant]
     Dosage: 1 DF, QW
  4. CETIRIZINE HYDROCHLORIDE [Concomitant]
     Dosage: 10 MG, QD
  5. AMILORIDE HYDROCHLORIDE (+) FUROSEMIDE [Concomitant]
     Dosage: 1 DF, BID
  6. LEVOTHYROXINE SODIUM [Concomitant]
     Dosage: 50 MICROGRAM, QD
  7. LINAGLIPTIN [Concomitant]
     Dosage: 5 MG, QD
  8. METFORMIN [Concomitant]
     Dosage: 500 MG, BID
  9. NICORANDIL [Concomitant]
     Dosage: 10 MG, QD
  10. NOVOMIX [Concomitant]
  11. OMEPRAZOLE [Concomitant]
     Dosage: 40 MG, BID
  12. SERETIDE [Concomitant]
     Dosage: 2 DF, BID
     Route: 055
  13. VERAPAMIL [Concomitant]
     Dosage: 240 MG, BID
     Route: 048

REACTIONS (6)
  - Lethargy [Unknown]
  - Renal failure acute [Unknown]
  - Muscular weakness [Unknown]
  - Rhabdomyolysis [Recovered/Resolved with Sequelae]
  - Alanine aminotransferase increased [Unknown]
  - Blood creatine phosphokinase increased [Unknown]
